FAERS Safety Report 13943196 (Version 2)
Quarter: 2017Q3

REPORT INFORMATION
  Report Type: Report from Study
  Country: TW (occurrence: TW)
  Receive Date: 20170907
  Receipt Date: 20170918
  Transmission Date: 20171128
  Serious: Yes (Hospitalization, Other)
  Sender: FDA-Public Use
  Company Number: TW-BRISTOL-MYERS SQUIBB COMPANY-BMS-2017-080379

PATIENT
  Age: 50 Year
  Sex: Female

DRUGS (1)
  1. ABATACEPT [Suspect]
     Active Substance: ABATACEPT
     Indication: RHEUMATOID ARTHRITIS
     Dosage: 500 MG/2VIAL
     Route: 041
     Dates: start: 20150930

REACTIONS (12)
  - Fall [Recovering/Resolving]
  - Arteriosclerosis [Unknown]
  - Asthenia [Recovering/Resolving]
  - Subarachnoid haemorrhage [Unknown]
  - Ventricular extrasystoles [Unknown]
  - Cerebral atrophy [Unknown]
  - Periorbital haematoma [Unknown]
  - Subdural haematoma [Unknown]
  - Breath sounds [Unknown]
  - Muscle contracture [Unknown]
  - Lacunar infarction [Unknown]
  - Extrasystoles [Unknown]

NARRATIVE: CASE EVENT DATE: 20170904
